FAERS Safety Report 13739189 (Version 1)
Quarter: 2017Q3

REPORT INFORMATION
  Report Type: Spontaneous
  Country: US (occurrence: US)
  Receive Date: 20170710
  Receipt Date: 20170710
  Transmission Date: 20171127
  Serious: Yes (Other)
  Sender: FDA-Public Use
  Company Number: US-SAOL THERAPEUTICS-2017SAO00922

PATIENT
  Age: 39 Year
  Sex: Male
  Weight: 63.49 kg

DRUGS (1)
  1. BACLOFEN. [Suspect]
     Active Substance: BACLOFEN
     Indication: SPINAL CORD NEOPLASM
     Dosage: 734.9 ?G, \DAY
     Route: 037

REACTIONS (3)
  - Drug withdrawal syndrome [Recovered/Resolved]
  - Device malfunction [Recovered/Resolved]
  - Device kink [Recovered/Resolved]

NARRATIVE: CASE EVENT DATE: 20170522
